FAERS Safety Report 5792275-1 (Version None)
Quarter: 2008Q2

REPORT INFORMATION
  Report Type: 
  Country: None (occurrence: None)
  Receive Date: 20080625
  Receipt Date: 20080523
  Transmission Date: 20081010
  Serious: Yes (Other)
  Sender: FDA-Public Use
  Company Number: US-WYE-H04276608

PATIENT

DRUGS (1)
  1. TORISEL [Suspect]
     Dosage: 25 MG 1X PER 1 WK, INTRAVENOUS
     Route: 042

REACTIONS (1)
  - RASH [None]
